FAERS Safety Report 21514706 (Version 1)
Quarter: 2022Q4

REPORT INFORMATION
  Report Type: Spontaneous
  Country: US (occurrence: US)
  Receive Date: 20221027
  Receipt Date: 20221027
  Transmission Date: 20230113
  Serious: Yes (Hospitalization, Other)
  Sender: FDA-Public Use
  Company Number: US-PFIZER INC-202201253502

PATIENT
  Age: 71 Year
  Sex: Female

DRUGS (2)
  1. IBRANCE [Suspect]
     Active Substance: PALBOCICLIB
     Indication: Breast cancer stage IV
     Dosage: 125 MG, CYCLIC (125MG TABLETS BY MOUTH DAILY FOR 21 DAYS ON 7 DAYS OFF)
     Route: 048
     Dates: start: 20220615, end: 20220929
  2. IBRANCE [Suspect]
     Active Substance: PALBOCICLIB
     Dosage: 100 MG

REACTIONS (21)
  - Pneumonia [Recovered/Resolved]
  - Sepsis [Recovered/Resolved]
  - Toxic shock syndrome [Recovered/Resolved]
  - Blood test abnormal [Recovered/Resolved]
  - Laboratory test abnormal [Recovered/Resolved]
  - Blood potassium decreased [Recovered/Resolved]
  - Red blood cell count decreased [Not Recovered/Not Resolved]
  - Illness [Recovered/Resolved]
  - Nausea [Recovering/Resolving]
  - Feeding disorder [Recovering/Resolving]
  - White blood cell count decreased [Unknown]
  - Platelet count decreased [Unknown]
  - Tumour marker increased [Not Recovered/Not Resolved]
  - Pyrexia [Recovered/Resolved]
  - Decreased appetite [Not Recovered/Not Resolved]
  - Taste disorder [Unknown]
  - Weight decreased [Not Recovered/Not Resolved]
  - Fall [Unknown]
  - Muscular weakness [Unknown]
  - Pain [Unknown]
  - Frustration tolerance decreased [Unknown]

NARRATIVE: CASE EVENT DATE: 20220101
